FAERS Safety Report 9362977 (Version 2)
Quarter: 2013Q2

REPORT INFORMATION
  Report Type: Spontaneous
  Country: US (occurrence: None)
  Receive Date: 20130619
  Receipt Date: 20130627
  Transmission Date: 20140414
  Serious: Yes (Death, Hospitalization)
  Sender: FDA-Public Use
  Company Number: 2013STPI000224

PATIENT
  Age: 36 Year
  Sex: Male
  Weight: 87.1 kg

DRUGS (12)
  1. MATULANE (PROCARBAZINE HYDROCHLORIDE) CAPSULE, 50MG [Suspect]
     Indication: BRAIN NEOPLASM MALIGNANT
     Route: 048
     Dates: end: 20130528
  2. PEPCID AC (FAMOTIDINE) [Concomitant]
  3. DEXAMETHASONE (DEXAMETHASONE) [Concomitant]
  4. PROCHLORPERAZINE MALEATE (PROCHLORPERAZINE MALEATE) [Concomitant]
  5. ZOFRAN (ONDANSETRON HYDROCHLORIDE) [Concomitant]
  6. ZONISAMIDE (ZONISAMIDE) [Concomitant]
  7. DIPHENHYDRAMINE HCL (DIPHENHYDRAMINE HYDROCHLORIDE) [Concomitant]
  8. KEPPRA (LEVETIRACETAM) [Concomitant]
  9. FISH OIL NATURE MADE (FISH OIL) [Concomitant]
  10. PROBIOTIC ACIDOPHILUS (LACTOBACILLUS ACIDOPHILUS) [Concomitant]
  11. VITAMIN D3 (COLECALCIFEROL) [Concomitant]
  12. 1 MULTIVITAMIN (VITAMINS NOS) [Concomitant]

REACTIONS (4)
  - Traumatic intracranial haemorrhage [None]
  - Fall [None]
  - Subarachnoid haemorrhage [None]
  - Convulsion [None]
